FAERS Safety Report 15988077 (Version 1)
Quarter: 2019Q1

REPORT INFORMATION
  Report Type: Spontaneous
  Country: US (occurrence: US)
  Receive Date: 20190220
  Receipt Date: 20190220
  Transmission Date: 20190418
  Serious: No
  Sender: FDA-Public Use
  Company Number: US-GLAXOSMITHKLINE-US2019026415

PATIENT
  Age: 24 Year
  Sex: Female

DRUGS (1)
  1. ABREVA [Suspect]
     Active Substance: DOCOSANOL
     Indication: ORAL HERPES
     Dosage: UNK
     Dates: start: 20190211, end: 20190212

REACTIONS (6)
  - Lip swelling [Not Recovered/Not Resolved]
  - Drug hypersensitivity [Unknown]
  - Hypersensitivity [Not Recovered/Not Resolved]
  - Induration [Not Recovered/Not Resolved]
  - Mouth swelling [Not Recovered/Not Resolved]
  - Wrong technique in product usage process [Unknown]

NARRATIVE: CASE EVENT DATE: 20190211
